FAERS Safety Report 6264529-6 (Version None)
Quarter: 2009Q3

REPORT INFORMATION
  Report Type: 
  Country: None (occurrence: None)
  Receive Date: 20090708
  Receipt Date: 20090702
  Transmission Date: 20100115
  Serious: Yes (Other)
  Sender: FDA-Public Use
  Company Number: 2009SP013906

PATIENT
  Age: 10 Year
  Sex: Male
  Weight: 40 kg

DRUGS (1)
  1. LORATADINE [Suspect]
     Indication: VIRAL RASH
     Dosage: 10 MG; QD; PO
     Route: 048
     Dates: start: 20090527, end: 20090531

REACTIONS (1)
  - EPILEPSY [None]
